FAERS Safety Report 7541070-1 (Version None)
Quarter: 2011Q2

REPORT INFORMATION
  Report Type: 
  Country: None (occurrence: None)
  Receive Date: 20110610
  Receipt Date: 20110606
  Transmission Date: 20111010
  Serious: Yes (Other)
  Sender: FDA-Public Use
  Company Number: US-ROCHE-764404

PATIENT
  Sex: Female
  Weight: 60.8 kg

DRUGS (1)
  1. ACCUTANE [Suspect]
     Indication: ACNE
     Route: 065
     Dates: start: 19940101, end: 19950101

REACTIONS (4)
  - CROHN'S DISEASE [None]
  - DEPRESSION [None]
  - ANAL FISTULA [None]
  - RECTAL ABSCESS [None]
